FAERS Safety Report 13124489 (Version 1)
Quarter: 2017Q1

REPORT INFORMATION
  Report Type: Spontaneous
  Country: US (occurrence: US)
  Receive Date: 20170118
  Receipt Date: 20170118
  Transmission Date: 20170428
  Serious: No
  Sender: FDA-Public Use
  Company Number: US-PFIZER INC-2017018145

PATIENT
  Age: 36 Year
  Sex: Female
  Weight: 100 kg

DRUGS (2)
  1. GENOTROPIN [Suspect]
     Active Substance: SOMATROPIN
     Indication: FAILURE TO THRIVE
     Dosage: UNK
     Dates: start: 2015
  2. GENOTROPIN [Suspect]
     Active Substance: SOMATROPIN
     Dosage: 0.3 MG, 1X/DAY
     Route: 058

REACTIONS (2)
  - Dysgeusia [Recovered/Resolved]
  - Laboratory test abnormal [Unknown]
